FAERS Safety Report 7335598-7 (Version None)
Quarter: 2011Q1

REPORT INFORMATION
  Report Type: 
  Country: None (occurrence: None)
  Receive Date: 20110307
  Receipt Date: 20110223
  Transmission Date: 20110831
  Serious: Yes (Other)
  Sender: FDA-Public Use
  Company Number: US-MYLANLABS-2010S1023728

PATIENT
  Sex: Male
  Weight: 84.82 kg

DRUGS (12)
  1. FLUTICASONE PROPIONATE [Concomitant]
     Dosage: 2 SPRAYS UP EACH NOSTRIL
  2. PERCOCET [Concomitant]
     Indication: BACK PAIN
     Dosage: 325MG
  3. VICODIN [Concomitant]
     Indication: BACK PAIN
     Dosage: 500MG 1-2 X A DAY
  4. ANUSOL /00117301/ [Concomitant]
     Route: 048
  5. TWINJECT 0.3 [Concomitant]
     Dosage: AS DIRECTED FOR ALERGIC REATION.
  6. ZITHROMAX [Concomitant]
     Indication: SINUSITIS
  7. PROPOXYPHENE NAPSYLATE AND ACETAMINOPHEN [Suspect]
     Route: 048
     Dates: start: 20070101, end: 20101201
  8. SEROQUEL [Concomitant]
  9. ATENOLOL [Concomitant]
     Indication: BLOOD PRESSURE
  10. METFORMIN [Concomitant]
     Indication: DIABETES MELLITUS
     Route: 048
  11. NORVASC [Concomitant]
  12. PROPOXYPHENE NAPSYLATE AND ACETAMINOPHEN [Suspect]
     Indication: BACK PAIN
     Route: 048
     Dates: start: 20070101, end: 20101201

REACTIONS (15)
  - PHOBIA [None]
  - RECTAL HAEMORRHAGE [None]
  - DIZZINESS [None]
  - LOSS OF CONSCIOUSNESS [None]
  - PALPITATIONS [None]
  - CONSTIPATION [None]
  - DEPRESSION [None]
  - NAUSEA [None]
  - ANXIETY [None]
  - VERTIGO [None]
  - HAEMORRHOIDS [None]
  - SUICIDAL IDEATION [None]
  - BLOOD PRESSURE INCREASED [None]
  - ABASIA [None]
  - ABDOMINAL PAIN UPPER [None]
